FAERS Safety Report 9250638 (Version 1)
Quarter: 2013Q1

REPORT INFORMATION
  Report Type: Spontaneous
  Country: US (occurrence: None)
  Receive Date: 20130305
  Receipt Date: 20130305
  Transmission Date: 20140127
  Serious: Yes (Hospitalization)
  Sender: FDA-Public Use
  Company Number: 163-21880-12082420

PATIENT
  Age: 57 Year
  Sex: Male

DRUGS (6)
  1. REVLIMID (LENALIDOMIDE) [Suspect]
     Indication: MYELOFIBROSIS
     Dosage: 1 IN 1 D
     Route: 048
     Dates: start: 20111202
  2. SEROQUEL(QUETIAPINE FUMARATE)(UNKNOWN) [Concomitant]
  3. DANAZOL(DANAZOL)(UNKNOWN) [Concomitant]
  4. SOMA(CARISOPRODOL)(UNKNOWN) [Concomitant]
  5. SPIRIVA HANDIHALER(TIOTROPIUM BROMIDE)(UNKNOWN) [Concomitant]
  6. PROVENTIL HFA(SALBUTAMOL) (UNKNOWN) [Concomitant]

REACTIONS (1)
  - Pneumonia [None]
